FAERS Safety Report 9844155 (Version 1)
Quarter: 2014Q1

REPORT INFORMATION
  Report Type: Spontaneous
  Country: US (occurrence: US)
  Receive Date: 20140127
  Receipt Date: 20140127
  Transmission Date: 20141002
  Serious: No
  Sender: FDA-Public Use
  Company Number: US-BIOGENIDEC-2014BI005626

PATIENT
  Age: 66 Year
  Sex: Female

DRUGS (2)
  1. TYSABRI [Suspect]
     Indication: MULTIPLE SCLEROSIS
     Route: 042
     Dates: start: 20131223
  2. AVONEX [Concomitant]
     Indication: MULTIPLE SCLEROSIS
     Route: 030
     Dates: start: 20040419

REACTIONS (5)
  - Fall [Recovered/Resolved]
  - Concussion [Unknown]
  - Contusion [Not Recovered/Not Resolved]
  - Confusional state [Not Recovered/Not Resolved]
  - Headache [Unknown]
